FAERS Safety Report 23713622 (Version 1)
Quarter: 2024Q2

REPORT INFORMATION
  Report Type: Other
  Country: AT (occurrence: AT)
  Receive Date: 20240405
  Receipt Date: 20240405
  Transmission Date: 20240716
  Serious: Yes (Other)
  Sender: FDA-Public Use
  Company Number: AT-TEVA-2021-AT-1902247

PATIENT
  Age: 41 Year
  Sex: Male

DRUGS (7)
  1. MYCOPHENOLATE MOFETIL [Suspect]
     Active Substance: MYCOPHENOLATE MOFETIL
     Indication: Immunosuppressant drug therapy
     Route: 065
  2. THYMOCYTE IMMUNE GLOBULIN NOS [Suspect]
     Active Substance: THYMOCYTE IMMUNE GLOBULIN NOS
     Indication: Immunosuppressant drug therapy
     Route: 065
  3. TACROLIMUS [Suspect]
     Active Substance: TACROLIMUS
     Indication: Immunosuppressant drug therapy
     Route: 065
  4. TACROLIMUS [Suspect]
     Active Substance: TACROLIMUS
     Indication: Off label use
  5. BELATACEPT [Suspect]
     Active Substance: BELATACEPT
     Indication: Immunosuppression
     Dosage: UNK
     Route: 065
  6. ENVARSUS XR [Suspect]
     Active Substance: TACROLIMUS
     Indication: Immunosuppressant drug therapy
     Dosage: 10-12 NG/ML
     Route: 065
  7. PREDNISOLONE [Suspect]
     Active Substance: PREDNISOLONE
     Indication: Immunosuppression
     Route: 065

REACTIONS (11)
  - Cytomegalovirus infection [Unknown]
  - Alternaria infection [Unknown]
  - Leukopenia [Unknown]
  - Skin papilloma [Unknown]
  - Herpes virus infection [Unknown]
  - Hypertension [Unknown]
  - Skin papilloma [Unknown]
  - Aphthous ulcer [Unknown]
  - Eczema [Unknown]
  - Headache [Unknown]
  - Transplant rejection [Unknown]
